FAERS Safety Report 7010329-9 (Version None)
Quarter: 2010Q3

REPORT INFORMATION
  Report Type: 
  Country: None (occurrence: None)
  Receive Date: 20100923
  Receipt Date: 20100920
  Transmission Date: 20110219
  Serious: Yes (Other)
  Sender: FDA-Public Use
  Company Number: B0675496A

PATIENT
  Sex: Male

DRUGS (1)
  1. ZYBAN [Suspect]
     Indication: SMOKING CESSATION THERAPY
     Dosage: 150MG TWICE PER DAY
     Route: 065
     Dates: start: 20100901

REACTIONS (5)
  - DEPRESSED MOOD [None]
  - MOOD SWINGS [None]
  - NICOTINE DEPENDENCE [None]
  - PARANOIA [None]
  - SUICIDAL IDEATION [None]
